FAERS Safety Report 11802207 (Version 3)
Quarter: 2015Q4

REPORT INFORMATION
  Report Type: Spontaneous
  Country: PE (occurrence: PE)
  Receive Date: 20151204
  Receipt Date: 20151216
  Transmission Date: 20160305
  Serious: Yes (Other)
  Sender: FDA-Public Use
  Company Number: PE-PFIZER INC-2015406830

PATIENT
  Age: 37 Year
  Sex: Female

DRUGS (3)
  1. TEARS NATURALE /00635701/ [Concomitant]
     Indication: DRY EYE
  2. ALPRAZOLAM. [Concomitant]
     Active Substance: ALPRAZOLAM
     Indication: ANXIETY
     Dosage: UNK
     Dates: start: 2015
  3. LYRICA [Suspect]
     Active Substance: PREGABALIN
     Indication: NEURALGIA
     Dosage: 75 MG, 1X/DAY
     Route: 048

REACTIONS (4)
  - Poisoning [Recovered/Resolved]
  - Rash [Recovered/Resolved]
  - Drug interaction [Recovered/Resolved]
  - Dry throat [Recovered/Resolved]

NARRATIVE: CASE EVENT DATE: 201511
